FAERS Safety Report 7390891-7 (Version None)
Quarter: 2011Q2

REPORT INFORMATION
  Report Type: 
  Country: None (occurrence: None)
  Receive Date: 20110404
  Receipt Date: 20110325
  Transmission Date: 20111010
  Serious: No
  Sender: FDA-Public Use
  Company Number: US-BIOGENIDEC-2011BI011088

PATIENT
  Sex: Male

DRUGS (2)
  1. BACLOFEN [Concomitant]
     Indication: PAIN
  2. AVONEX [Suspect]
     Indication: MULTIPLE SCLEROSIS
     Route: 030
     Dates: start: 20081014

REACTIONS (3)
  - MENTAL IMPAIRMENT [None]
  - FATIGUE [None]
  - PAIN [None]
